FAERS Safety Report 5366760-0 (Version None)
Quarter: 2007Q2

REPORT INFORMATION
  Report Type: 
  Country: None (occurrence: None)
  Receive Date: 20070622
  Receipt Date: 20060907
  Transmission Date: 20071010
  Serious: No
  Sender: FDA-Public Use
  Company Number: US-ASTRAZENECA-2006UW17630

PATIENT
  Age: 35 Year
  Sex: Male
  Weight: 113.4 kg

DRUGS (2)
  1. RHINOCORT [Suspect]
     Route: 045
     Dates: start: 20060801
  2. MOTRIN [Concomitant]

REACTIONS (1)
  - BARBITURATES POSITIVE [None]
